FAERS Safety Report 18262630 (Version 1)
Quarter: 2020Q3

REPORT INFORMATION
  Report Type: Spontaneous
  Country: US (occurrence: US)
  Receive Date: 20200911
  Receipt Date: 20200911
  Transmission Date: 20201103
  Serious: No
  Sender: FDA-Public Use
  Company Number: None

PATIENT
  Sex: Female

DRUGS (5)
  1. FLUOROURACIL. [Concomitant]
     Active Substance: FLUOROURACIL
  2. LEUCOVORIN. [Concomitant]
     Active Substance: LEUCOVORIN
  3. APREPITANT. [Concomitant]
     Active Substance: APREPITANT
  4. NEULASTA [Concomitant]
     Active Substance: PEGFILGRASTIM
  5. OXALIPLATIN 100MG/20ML CIAL [Suspect]
     Active Substance: OXALIPLATIN
     Indication: NEOPLASM MALIGNANT
     Dosage: ?
     Route: 042

REACTIONS (1)
  - Cerebrovascular accident [None]
